FAERS Safety Report 5370627-1 (Version None)
Quarter: 2007Q2

REPORT INFORMATION
  Report Type: 
  Country: None (occurrence: None)
  Receive Date: 20070622
  Receipt Date: 20070606
  Transmission Date: 20071010
  Serious: Yes (Life-Threatening)
  Sender: FDA-Public Use
  Company Number: 2007US001381

PATIENT
  Age: 15 Year
  Sex: Male

DRUGS (27)
  1. AMBISOME [Suspect]
     Indication: FUNGAL SEPSIS
     Dosage: SEE IMAGE
     Route: 041
     Dates: start: 20070428, end: 20070503
  2. AMBISOME [Suspect]
     Indication: FUNGAL SEPSIS
     Dosage: SEE IMAGE
     Route: 041
     Dates: start: 20070503, end: 20070505
  3. MEROPEN (MEROPENEM) [Concomitant]
  4. SOLU-MEDROL [Concomitant]
  5. VANCOMYCIN HYDROCHLORIDE [Concomitant]
  6. SODIUM BICARBONATE [Concomitant]
  7. ZOVIRAX [Concomitant]
  8. OMEGACIN (BIAPENEM) [Concomitant]
  9. LASIX [Concomitant]
  10. MENATETRENONE (MENATERENONE) [Concomitant]
  11. VITAJECT (THIAMINE HYDROCHLORIDE) [Concomitant]
  12. ZOFRAN [Concomitant]
  13. VENOGLOBULIN [Concomitant]
  14. NICHOLIN (CITICOLINE) [Concomitant]
  15. MIRACLID (ULINASTATIN) [Concomitant]
  16. ANTITHROMBIN II (ANTITHROMBIN III) [Concomitant]
  17. SODIUM CHLORIDE 0.9% [Concomitant]
  18. ALBUMIN (HUMAN) [Concomitant]
  19. GASTER [Concomitant]
  20. MINERAL TAB [Concomitant]
  21. METILON (METAMIZOLE SODIUM) [Concomitant]
  22. VFEND [Concomitant]
  23. HANP [Concomitant]
  24. FENTANYL [Concomitant]
  25. CALCICOL (CALCIUM GLUCONATE) [Concomitant]
  26. PREDONINE (PREDNISOLONE SODIUM SUCCINATE) [Concomitant]
  27. ZOVIRAX [Concomitant]

REACTIONS (10)
  - BLOOD CHLORIDE DECREASED [None]
  - BLOOD SODIUM DECREASED [None]
  - BONE MARROW TRANSPLANT [None]
  - CARDIAC ARREST [None]
  - CONDITION AGGRAVATED [None]
  - HYPOKALAEMIA [None]
  - LEUKAEMIA [None]
  - PANCREATITIS ACUTE [None]
  - PULMONARY OEDEMA [None]
  - SEPSIS [None]
